FAERS Safety Report 7107324-8 (Version None)
Quarter: 2010Q4

REPORT INFORMATION
  Report Type: 
  Country: None (occurrence: None)
  Receive Date: 20101117
  Receipt Date: 20101111
  Transmission Date: 20110411
  Serious: Yes (Hospitalization)
  Sender: FDA-Public Use
  Company Number: CH-BIOGENIDEC-2010BI018095

PATIENT
  Age: 53 Year
  Sex: Female

DRUGS (4)
  1. AVONEX [Suspect]
     Indication: MULTIPLE SCLEROSIS
     Route: 030
     Dates: start: 20100315, end: 20100404
  2. CIPRALEX [Concomitant]
  3. EUTHYROX [Concomitant]
  4. NOVOFEM [Concomitant]

REACTIONS (1)
  - LIVER INJURY [None]
